FAERS Safety Report 9104198 (Version 1)
Quarter: 2013Q1

REPORT INFORMATION
  Report Type: Spontaneous
  Country: GB (occurrence: GB)
  Receive Date: 20130219
  Receipt Date: 20130219
  Transmission Date: 20140127
  Serious: Yes (Death, Other)
  Sender: FDA-Public Use
  Company Number: GB-PFIZER INC-2013058908

PATIENT
  Age: 85 Year
  Sex: Male

DRUGS (2)
  1. PHENYTOIN [Suspect]
     Indication: STATUS EPILEPTICUS
     Route: 042
     Dates: start: 20130201, end: 20130201
  2. INSULIN HUMAN [Concomitant]

REACTIONS (3)
  - Haemodynamic instability [Fatal]
  - Blood pressure systolic decreased [Unknown]
  - Somnolence [Unknown]
